FAERS Safety Report 8134009-1 (Version None)
Quarter: 2012Q1

REPORT INFORMATION
  Report Type: 
  Country: None (occurrence: None)
  Receive Date: 20120213
  Receipt Date: 20120208
  Transmission Date: 20120608
  Serious: Yes (Life-Threatening, Other)
  Sender: FDA-Public Use
  Company Number: US-ASTRAZENECA-2012SE08991

PATIENT
  Age: 15 Year
  Sex: Male

DRUGS (1)
  1. SEROQUEL [Suspect]
     Indication: BIPOLAR DISORDER
     Route: 048

REACTIONS (4)
  - DRUG DOSE OMISSION [None]
  - SUICIDE ATTEMPT [None]
  - AGGRESSION [None]
  - SUICIDAL IDEATION [None]
